FAERS Safety Report 14325287 (Version 2)
Quarter: 2018Q1

REPORT INFORMATION
  Report Type: Report from Study
  Country: US (occurrence: US)
  Receive Date: 20171226
  Receipt Date: 20180102
  Transmission Date: 20180509
  Serious: Yes (Hospitalization)
  Sender: FDA-Public Use
  Company Number: PHHO2017US012997

PATIENT
  Age: 41 Year
  Sex: Male
  Weight: 91.7 kg

DRUGS (11)
  1. DIGOXIN. [Concomitant]
     Active Substance: DIGOXIN
     Indication: CARDIAC FAILURE CONGESTIVE
     Dosage: 0.125 MG, QD
     Route: 065
     Dates: start: 201612
  2. TOPROL XL [Concomitant]
     Active Substance: METOPROLOL SUCCINATE
     Indication: CARDIAC FAILURE CHRONIC
     Dosage: 25 MG, QD
     Route: 065
     Dates: start: 20171024
  3. SPIRONOLACTONE. [Concomitant]
     Active Substance: SPIRONOLACTONE
     Indication: CARDIAC FAILURE CONGESTIVE
     Dosage: 50 MG, QD
     Route: 065
     Dates: start: 201612
  4. COLCHICINE. [Concomitant]
     Active Substance: COLCHICINE
     Indication: MYOCARDITIS
     Dosage: 0.6 MG, BID
     Route: 065
     Dates: start: 20171115
  5. BLINDED LCZ696 [Suspect]
     Active Substance: SACUBITRIL\VALSARTAN
     Indication: CARDIAC FAILURE ACUTE
     Dosage: NO TREATMENT
     Route: 065
  6. LASIX [Concomitant]
     Active Substance: FUROSEMIDE
     Indication: CARDIAC FAILURE CONGESTIVE
     Dosage: 80 MG, BID
     Route: 065
     Dates: start: 201612
  7. BLINDED ENALAPRIL [Suspect]
     Active Substance: ENALAPRIL
     Indication: CARDIAC FAILURE ACUTE
     Dosage: NO TREATMENT
     Route: 065
  8. LCZ696 [Suspect]
     Active Substance: SACUBITRIL\VALSARTAN
     Indication: CARDIAC FAILURE ACUTE
     Dosage: 49/51 MG, BID
     Route: 048
     Dates: start: 20170824
  9. ASPIRIN. [Concomitant]
     Active Substance: ASPIRIN
     Indication: PROPHYLAXIS
     Dosage: 81 MG, QD
     Route: 065
     Dates: start: 201612
  10. BLINDED NO TREATMENT RECEIVED [Suspect]
     Active Substance: INVESTIGATIONAL PRODUCT
     Indication: CARDIAC FAILURE ACUTE
     Dosage: NO TREATMENT
     Route: 065
  11. LCZ696 [Suspect]
     Active Substance: SACUBITRIL\VALSARTAN
     Dosage: 49/51 MG, BID
     Route: 048
     Dates: start: 20171025

REACTIONS (5)
  - Chronic left ventricular failure [Recovered/Resolved]
  - Cardiac failure acute [Recovered/Resolved]
  - Chest pain [Recovered/Resolved]
  - Cardiac failure congestive [Not Recovered/Not Resolved]
  - Dyspnoea [Recovered/Resolved]

NARRATIVE: CASE EVENT DATE: 20170912
